FAERS Safety Report 22037530 (Version 2)
Quarter: 2023Q1

REPORT INFORMATION
  Report Type: Spontaneous
  Country: GB (occurrence: None)
  Receive Date: 20230227
  Receipt Date: 20230327
  Transmission Date: 20230417
  Serious: Yes (Disabling, Other)
  Sender: FDA-Public Use
  Company Number: GB-ROCHE-3290316

PATIENT
  Age: 92 Year
  Sex: Female

DRUGS (1)
  1. VABYSMO [Suspect]
     Active Substance: FARICIMAB-SVOA
     Indication: Neovascular age-related macular degeneration
     Dosage: 6MG/0.5ML
     Route: 050
     Dates: start: 20221214, end: 20221214

REACTIONS (4)
  - Iridocyclitis [Recovered/Resolved with Sequelae]
  - Drug ineffective [Unknown]
  - Age-related macular degeneration [Unknown]
  - Retinal haemorrhage [Unknown]

NARRATIVE: CASE EVENT DATE: 20221221
